FAERS Safety Report 21002987 (Version 1)
Quarter: 2022Q2

REPORT INFORMATION
  Report Type: Spontaneous
  Country: US (occurrence: US)
  Receive Date: 20220624
  Receipt Date: 20220624
  Transmission Date: 20220721
  Serious: No
  Sender: FDA-Public Use
  Company Number: US-ORGANON-O2206USA002102

PATIENT
  Age: 19 Year
  Sex: Female
  Weight: 89.342 kg

DRUGS (2)
  1. NEXPLANON [Suspect]
     Active Substance: ETONOGESTREL
     Indication: Contraception
     Dosage: 1 IMPLANT IN RIGHT ARM (EVERY 3 YEARS)
     Route: 059
     Dates: start: 20210329
  2. NEXPLANON [Suspect]
     Active Substance: ETONOGESTREL
     Indication: Menstruation irregular

REACTIONS (2)
  - Pain in extremity [Not Recovered/Not Resolved]
  - Paraesthesia [Not Recovered/Not Resolved]

NARRATIVE: CASE EVENT DATE: 20220615
